FAERS Safety Report 7828983-8 (Version None)
Quarter: 2011Q4

REPORT INFORMATION
  Report Type: 
  Country: None (occurrence: None)
  Receive Date: 20111020
  Receipt Date: 20111011
  Transmission Date: 20120403
  Serious: Yes (Other)
  Sender: FDA-Public Use
  Company Number: IT-BAYER-2011-096793

PATIENT
  Age: 65 Year
  Sex: Male

DRUGS (1)
  1. NEXAVAR [Suspect]
     Indication: HEPATIC NEOPLASM MALIGNANT NON-RESECTABLE
     Dosage: DAILY DOSE 800 MG
     Route: 048
     Dates: start: 20110820, end: 20110826

REACTIONS (5)
  - ASCITES [None]
  - NAUSEA [None]
  - VOMITING [None]
  - DIARRHOEA [None]
  - CACHEXIA [None]
